FAERS Safety Report 6928764-3 (Version None)
Quarter: 2010Q3

REPORT INFORMATION
  Report Type: 
  Country: None (occurrence: None)
  Receive Date: 20100817
  Receipt Date: 20100812
  Transmission Date: 20110219
  Serious: Yes (Other)
  Sender: FDA-Public Use
  Company Number: US-BRISTOL-MYERS SQUIBB COMPANY-15231459

PATIENT
  Age: 69 Year
  Sex: Female

DRUGS (18)
  1. ORENCIA [Suspect]
     Dosage: RECEIVIED 3 VIALS OF 750 MG, 250 MG, PRESCRI ON 08/5/10
     Route: 042
  2. PREMARIN [Suspect]
     Dosage: 1DF=1TAB, 0.45 MG, PRESCRI ON 18/11/09
     Route: 048
  3. CIPROFLOXACIN HCL [Concomitant]
     Dosage: CITOXAN 0.3% OP SOLN, 5 ML
  4. PRINIVIL [Concomitant]
     Dosage: 20MG; 1DF=1 TAB
     Route: 048
  5. AMBIEN CR [Concomitant]
     Dosage: 12.5MG; 1DF:1 TAB
     Route: 048
  6. PAXIL [Concomitant]
     Dosage: 2DF=2 TAB;20MG
     Route: 048
  7. DIAZEPAM [Concomitant]
     Dosage: 1DF=1 TAB;5MG
     Route: 048
  8. LIDOCAINE [Concomitant]
     Dosage: PATCH;1EA;PRN
     Route: 061
  9. LEVOXYL [Concomitant]
     Dosage: TAB
     Route: 048
  10. PREDNISOLONE [Concomitant]
     Dosage: 2DF=2 TAB;5MG
     Route: 048
  11. METHOTREXATE SODIUM [Concomitant]
     Dosage: 25MG/ML
     Route: 030
  12. MAXZIDE [Concomitant]
     Dosage: 1DF=1 TAB;25/37.5MG;1EA
     Route: 048
  13. TIMOPTIC [Concomitant]
  14. XALATAN [Concomitant]
  15. WELCHOL [Concomitant]
     Dosage: 1DF=1 TAB;625MG
     Route: 048
  16. TRILIPIX [Concomitant]
     Dosage: 1DF=1 CAP;135MG
     Route: 048
  17. BYSTOLIC [Concomitant]
     Dosage: 1DF-1 TAB;5MG
     Route: 048
  18. LOVAZA [Concomitant]
     Dosage: CAPS;1GM
     Route: 048

REACTIONS (1)
  - PULMONARY EMBOLISM [None]
